FAERS Safety Report 4691800-1 (Version None)
Quarter: 2005Q2

REPORT INFORMATION
  Report Type: 
  Country: None (occurrence: None)
  Receive Date: 20050616
  Receipt Date: 20050603
  Transmission Date: 20051028
  Serious: Yes (Death)
  Sender: FDA-Public Use
  Company Number: BR-JNJFOC-20050602466

PATIENT

DRUGS (1)
  1. ORTHO EVRA [Suspect]

REACTIONS (1)
  - INTRA-UTERINE DEATH [None]
